FAERS Safety Report 24168387 (Version 2)
Quarter: 2024Q4

REPORT INFORMATION
  Report Type: Report from Study
  Country: ES (occurrence: ES)
  Receive Date: 20240802
  Receipt Date: 20241003
  Transmission Date: 20250115
  Serious: Yes (Disabling, Other)
  Sender: JOHNSON AND JOHNSON
  Company Number: ES-JNJFOC-20240565229

PATIENT
  Age: 81 Year
  Sex: Female
  Weight: 66 kg

DRUGS (9)
  1. TALQUETAMAB [Suspect]
     Active Substance: TALQUETAMAB
     Indication: Plasma cell myeloma
     Route: 058
     Dates: start: 20230910, end: 20240406
  2. ERITROPOYETINA [ERYTHROPOIETIN HUMAN] [Concomitant]
     Indication: Anaemia
     Route: 058
     Dates: start: 20240514
  3. ACYCLOVIR [Concomitant]
     Active Substance: ACYCLOVIR
     Indication: Antiviral prophylaxis
     Dates: start: 20231009
  4. COTRIMOXAZOLE [Concomitant]
     Active Substance: SULFAMETHOXAZOLE\TRIMETHOPRIM
     Indication: Prophylaxis
     Dates: start: 20231009
  5. OLMESARTAN MEDOXOMIL/HYDROCHLOROTHIAZIDE KRKA [Concomitant]
     Indication: Hypertension
     Dates: start: 20210210
  6. OMEPRAZOLE [Concomitant]
     Active Substance: OMEPRAZOLE
     Indication: Gastritis
     Dates: start: 20210210
  7. BISOPROLOL FUMARATE [Concomitant]
     Active Substance: BISOPROLOL FUMARATE
     Indication: Hypertension
     Dates: start: 20210210
  8. LORMETAZEPAM [Concomitant]
     Active Substance: LORMETAZEPAM
     Indication: Insomnia
     Dates: start: 20231009
  9. FUROSEMIDE [Concomitant]
     Active Substance: FUROSEMIDE
     Dates: start: 20210210

REACTIONS (3)
  - Hip arthroplasty [Unknown]
  - Myoclonus [Not Recovered/Not Resolved]
  - Weight decreased [Recovering/Resolving]

NARRATIVE: CASE EVENT DATE: 20240205
